FAERS Safety Report 7699054-9 (Version None)
Quarter: 2011Q3

REPORT INFORMATION
  Report Type: 
  Country: None (occurrence: None)
  Receive Date: 20110819
  Receipt Date: 20110818
  Transmission Date: 20111222
  Serious: No
  Sender: FDA-Public Use
  Company Number: US-PFIZER INC-2011191164

PATIENT
  Sex: Female
  Weight: 63.492 kg

DRUGS (3)
  1. VITAMIN D [Concomitant]
     Dosage: UNK
  2. PRISTIQ [Suspect]
     Indication: ANXIETY
     Dosage: 50 MG, DAILY
     Dates: start: 20110810
  3. PRISTIQ [Suspect]
     Indication: DEPRESSION

REACTIONS (3)
  - HYPOAESTHESIA [None]
  - PAIN [None]
  - PARAESTHESIA [None]
